FAERS Safety Report 22314999 (Version 1)
Quarter: 2023Q2

REPORT INFORMATION
  Report Type: Spontaneous
  Country: US (occurrence: US)
  Receive Date: 20230512
  Receipt Date: 20230512
  Transmission Date: 20230721
  Serious: Yes (Death, Other)
  Sender: FDA-Public Use
  Company Number: US-BRISTOL-MYERS SQUIBB COMPANY-2023-067720

PATIENT
  Age: 77 Year
  Sex: Female
  Weight: 96.8 kg

DRUGS (29)
  1. ELIQUIS [Suspect]
     Active Substance: APIXABAN
     Indication: Intermittent claudication
     Route: 048
     Dates: start: 20210917, end: 20220907
  2. ELIQUIS [Suspect]
     Active Substance: APIXABAN
     Indication: Atrial tachycardia
  3. ELIQUIS [Suspect]
     Active Substance: APIXABAN
     Indication: Cerebrovascular accident prophylaxis
  4. ELIQUIS [Suspect]
     Active Substance: APIXABAN
     Indication: Peripheral venous disease
  5. ZOFRAN [Concomitant]
     Active Substance: ONDANSETRON HYDROCHLORIDE
     Indication: Nausea
     Dosage: DISINTEGRATING TABLET?TAKE 1 TABLET BY MOUTH EVERY EIGHT HOURS AS NEEDED. DISSOLVE TABLET IN MOUTH W
     Route: 048
     Dates: start: 20220907
  6. MYCOSTATIN [Concomitant]
     Active Substance: NYSTATIN
     Indication: Stomatitis
     Dosage: 100000 UNIT/ML?TAKE 5 ML ORALLY FOUR TIMES A DAY FOR 2 WEEKS
     Route: 048
     Dates: start: 20220818
  7. MYCOSTATIN [Concomitant]
     Active Substance: NYSTATIN
     Indication: Candida infection
  8. MORPHINE [Concomitant]
     Active Substance: MORPHINE
     Indication: Product used for unknown indication
     Dosage: CONCENTRATED SOLUTION?TAKE 0.25-0.5 MLS EVERY HOUR AS NEEDED
     Route: 048
     Dates: start: 20220907, end: 20220919
  9. MELATONIN [Concomitant]
     Active Substance: MELATONIN
     Indication: Product used for unknown indication
     Dosage: 3 MG NIGHTLY AS NEEDED
     Route: 048
  10. ATIVAN [Concomitant]
     Active Substance: LORAZEPAM
     Indication: Product used for unknown indication
     Dosage: CONCENTRATED SOLUTION?TAKE 1 MG EVERY HOUR AS NEEDED
     Route: 048
     Dates: start: 20220828, end: 20220927
  11. DUONEB [Concomitant]
     Active Substance: ALBUTEROL SULFATE\IPRATROPIUM BROMIDE
     Indication: Product used for unknown indication
     Dosage: 0.5-0.25 (3) MG/3 ML SOLN?INHALE 3 ML INTO THE LUNGS 4 TIMES DAILY AS NEEDED
     Route: 055
     Dates: start: 20220828
  12. DICLOFENAC [Concomitant]
     Active Substance: DICLOFENAC
     Indication: Product used for unknown indication
     Dosage: APPLY 4 GRAMS TOPICALLY TO BACK 4 TIMES DAILY, DOSING CARD TO MEASURE DOSE, IF NOT AVAILABLE A 2 GRA
     Route: 061
     Dates: start: 20210902
  13. TUMS [Concomitant]
     Active Substance: CALCIUM CARBONATE
     Indication: Dyspepsia
     Dosage: 1 TABLET EVERY 6 HOURS AS NEEDED
     Route: 048
  14. DULCOLAX (BISACODYL) [Concomitant]
     Active Substance: BISACODYL
     Indication: Product used for unknown indication
     Route: 054
  15. ATROPINE [Concomitant]
     Active Substance: ATROPINE
     Indication: Product used for unknown indication
     Dosage: OPHTHALMIC SOLUTION, PLACE ONE DROP UNDER THE TONGUE EVERY 4 HOURS AS NEEDED (SECRETIONS)
     Route: 060
     Dates: start: 20220907
  16. ZYLOPRIM [Concomitant]
     Active Substance: ALLOPURINOL
     Indication: Product used for unknown indication
     Route: 048
     Dates: start: 20211123
  17. ALBUTEROL [Concomitant]
     Active Substance: ALBUTEROL
     Indication: Wheezing
     Dosage: 108 (90 BASE) MCG/ACT INHALER ?INHALE 2 PUFFS INTO THE LUNGS EVERY 6 HOURS AS NEEDED
     Route: 055
     Dates: start: 20211112
  18. TYLENOL [Concomitant]
     Active Substance: ACETAMINOPHEN
     Indication: Product used for unknown indication
     Dosage: TAKE 2 TABLETS (650 MG) EVERY 6 HOURS AS NEEDED
     Route: 048
     Dates: start: 20211102
  19. ASPIRIN [Concomitant]
     Active Substance: ASPIRIN
     Indication: Product used for unknown indication
  20. LIPITOR [Concomitant]
     Active Substance: ATORVASTATIN CALCIUM
     Indication: Product used for unknown indication
  21. SARNA [Concomitant]
     Active Substance: CAMPHOR (SYNTHETIC)\MENTHOL
     Indication: Product used for unknown indication
  22. TOPROL XL [Concomitant]
     Active Substance: METOPROLOL SUCCINATE
     Indication: Product used for unknown indication
     Dosage: 24 HR TABLET
  23. NARCAN [Concomitant]
     Active Substance: NALOXONE HYDROCHLORIDE
     Indication: Product used for unknown indication
     Dosage: 4 MG/ 0.1 ML, NASAL LIQUID
  24. ROXICODONE [Concomitant]
     Active Substance: OXYCODONE HYDROCHLORIDE
     Indication: Product used for unknown indication
     Dosage: IMMEDIATE RELEASE TABLET
  25. POTASSIUM CHLORIDE [Concomitant]
     Active Substance: POTASSIUM CHLORIDE
     Indication: Product used for unknown indication
     Dosage: SA
  26. SENNA PLUS [Concomitant]
     Active Substance: DOCUSATE SODIUM\SENNOSIDES\SENNOSIDES A AND B
     Indication: Product used for unknown indication
     Dosage: 8.6-50 MG PER TABLET
  27. DEMADEX [Concomitant]
     Active Substance: TORSEMIDE
     Indication: Product used for unknown indication
  28. ULTRAM [Concomitant]
     Active Substance: TRAMADOL HYDROCHLORIDE
     Indication: Product used for unknown indication
  29. VITAMIN A AND VITAMIN D [Concomitant]
     Active Substance: PETROLATUM
     Indication: Product used for unknown indication
     Dosage: EMOLIENT CREAM

REACTIONS (1)
  - Death [Fatal]
